FAERS Safety Report 19402630 (Version 1)
Quarter: 2021Q2

REPORT INFORMATION
  Report Type: Spontaneous
  Country: SE (occurrence: GB)
  Receive Date: 20210610
  Receipt Date: 20210610
  Transmission Date: 20210717
  Serious: Yes (Congenital Anomaly, Other)
  Sender: FDA-Public Use
  Company Number: SE-PFIZER INC-2021609493

PATIENT

DRUGS (4)
  1. CLOBAZAM. [Suspect]
     Active Substance: CLOBAZAM
     Dosage: 10 MG,ONCE DAILY, DURING FIRST, SECOND AND THIRD TRIMESTER
     Route: 064
  2. LEVETIRACETAM. [Suspect]
     Active Substance: LEVETIRACETAM
     Dosage: DURING 1ST, 2ND AND 3RD TRIMESTER
     Route: 064
  3. LAMOTRIGINE. [Suspect]
     Active Substance: LAMOTRIGINE
     Dosage: DURING 1ST, 2ND AND 3RD TRIMESTER
     Route: 064
  4. VALPROIC ACID. [Suspect]
     Active Substance: VALPROIC ACID
     Dosage: DURING 1ST, 2ND AND 3RD TRIMESTER
     Route: 064

REACTIONS (2)
  - Maternal exposure during pregnancy [Unknown]
  - Spina bifida [Unknown]
